FAERS Safety Report 9827134 (Version 1)
Quarter: 2014Q1

REPORT INFORMATION
  Report Type: Spontaneous
  Country: US (occurrence: US)
  Receive Date: 20140117
  Receipt Date: 20140117
  Transmission Date: 20141002
  Serious: No
  Sender: FDA-Public Use
  Company Number: US-009507513-1312USA010774

PATIENT
  Sex: Male
  Weight: 83.9 kg

DRUGS (5)
  1. VICTRELIS [Suspect]
     Indication: HEPATITIS C
     Dosage: 800 MG, TID
     Route: 048
     Dates: start: 201309
  2. PEGASYS [Suspect]
     Indication: HEPATITIS C
  3. RIBAPAK [Suspect]
     Indication: HEPATITIS C
     Dosage: 600 MG, QD
  4. IBUPROFEN [Concomitant]
     Indication: INFLUENZA LIKE ILLNESS
  5. IBUPROFEN [Concomitant]
     Indication: PAIN

REACTIONS (4)
  - White blood cell count decreased [Unknown]
  - Dyspnoea [Unknown]
  - Red blood cell count decreased [Unknown]
  - Fatigue [Unknown]
